FAERS Safety Report 5217675-X (Version None)
Quarter: 2006Q4

REPORT INFORMATION
  Report Type: 
  Country: None (occurrence: None)
  Receive Date: 20061130
  Receipt Date: 20060608
  Transmission Date: 20070319
  Serious: Yes (Hospitalization, Other)
  Sender: FDA-Public Use
  Company Number: US200601004016

PATIENT
  Sex: Female
  Weight: 49.9 kg

DRUGS (4)
  1. ZYPREXA [Suspect]
     Dosage: 15MG, 10MG, 20MG
     Dates: start: 19970101, end: 20020101
  2. ZYPREXA [Suspect]
     Dosage: 15MG, 10MG, 20MG
     Dates: start: 20020201, end: 20030401
  3. ZYPREXA [Suspect]
     Dosage: 15MG, 10MG, 20MG
     Dates: start: 20031201, end: 20050101
  4. ZYPREXA [Suspect]
     Dosage: 15MG, 10MG, 20MG
     Dates: start: 20031001

REACTIONS (14)
  - BLOOD CHOLESTEROL ABNORMAL [None]
  - DIABETES MELLITUS [None]
  - DIABETIC COMA [None]
  - DIABETIC KETOACIDOSIS [None]
  - GLYCOSURIA [None]
  - HYPERGLYCAEMIA [None]
  - HYPERPHAGIA [None]
  - HYPOGLYCAEMIA [None]
  - OBESITY [None]
  - PANCREATITIS [None]
  - POLYDIPSIA [None]
  - POLYURIA [None]
  - VISION BLURRED [None]
  - WEIGHT DECREASED [None]
